FAERS Safety Report 9698282 (Version 2)
Quarter: 2013Q4

REPORT INFORMATION
  Report Type: Spontaneous
  Country: US (occurrence: US)
  Receive Date: 20131120
  Receipt Date: 20131223
  Transmission Date: 20140711
  Serious: Yes (Other)
  Sender: FDA-Public Use
  Company Number: US-GLAXOSMITHKLINE-A1046474A

PATIENT
  Age: 49 Year
  Sex: Female
  Weight: 80 kg

DRUGS (9)
  1. BENLYSTA [Suspect]
     Indication: SYSTEMIC LUPUS ERYTHEMATOSUS
     Dosage: 800MG SINGLE DOSE
     Route: 042
     Dates: start: 20131012, end: 20131012
  2. TYLENOL [Suspect]
     Indication: PREMEDICATION
     Dosage: 1000MG SINGLE DOSE
     Route: 048
     Dates: start: 20131012, end: 20131012
  3. BENADRYL [Suspect]
     Indication: PREMEDICATION
     Dosage: 25MG SINGLE DOSE
     Route: 048
     Dates: start: 20131012, end: 20131012
  4. NIFEDIPINE [Concomitant]
  5. LISINOPRIL [Concomitant]
  6. LEFLUNOMIDE [Concomitant]
  7. HYDROXYCHLOROQUINE SULFATE [Concomitant]
  8. TRIAMTEREN + HYDROCHLOROTHIAZIDE [Concomitant]
  9. AMITRIPTYLINE [Concomitant]

REACTIONS (5)
  - Palpitations [Recovered/Resolved]
  - Heart rate increased [Recovered/Resolved]
  - Restlessness [Recovered/Resolved]
  - Drug interaction [Recovered/Resolved]
  - Panic attack [Recovered/Resolved]
